FAERS Safety Report 8740348 (Version 2)
Quarter: 2013Q1

REPORT INFORMATION
  Report Type: Spontaneous
  Country: US (occurrence: US)
  Receive Date: 20120823
  Receipt Date: 20130110
  Transmission Date: 20140127
  Serious: No
  Sender: FDA-Public Use
  Company Number: US-009507513-1208USA004684

PATIENT
  Sex: Male

DRUGS (3)
  1. VICTRELIS [Suspect]
     Indication: HEPATITIS C
     Dosage: 800 MG, TID
     Route: 048
     Dates: start: 20120611, end: 20120807
  2. PEGINTRON [Suspect]
     Dosage: 120 MICROGRAM, QW
     Route: 058
     Dates: start: 20120504, end: 20120807
  3. RIBASPHERE [Suspect]
     Dosage: UNK

REACTIONS (4)
  - Thyroid disorder [Unknown]
  - Hormone level abnormal [Unknown]
  - Transfusion [Unknown]
  - Renal disorder [Unknown]
